FAERS Safety Report 12806906 (Version 1)
Quarter: 2016Q4

REPORT INFORMATION
  Report Type: Spontaneous
  Country: US (occurrence: US)
  Receive Date: 20161004
  Receipt Date: 20161004
  Transmission Date: 20170207
  Serious: No
  Sender: FDA-Public Use
  Company Number: US-JNJFOC-20160824375

PATIENT
  Age: 57 Year
  Sex: Female
  Weight: 111.13 kg

DRUGS (4)
  1. WOMENS ROGAINE UNSCENTED [Suspect]
     Active Substance: MINOXIDIL
     Indication: ALOPECIA
     Dosage: LIBERALLY
     Route: 061
     Dates: start: 201605
  2. WOMENS ROGAINE UNSCENTED [Suspect]
     Active Substance: MINOXIDIL
     Route: 061
  3. FISH OIL [Concomitant]
     Active Substance: FISH OIL
     Indication: BLOOD CHOLESTEROL INCREASED
     Dosage: 4 PER DAY
     Route: 065
  4. VITAMIN D [Concomitant]
     Active Substance: CHOLECALCIFEROL
     Indication: NEOPLASM PROPHYLAXIS
     Route: 065

REACTIONS (7)
  - Incorrect dose administered [Not Recovered/Not Resolved]
  - Wrong technique in product usage process [Not Recovered/Not Resolved]
  - Intentional product misuse [Not Recovered/Not Resolved]
  - Drug dose omission [Not Recovered/Not Resolved]
  - Migraine [Not Recovered/Not Resolved]
  - Intentional product use issue [Not Recovered/Not Resolved]
  - Product quality issue [Unknown]
